FAERS Safety Report 4911456-X (Version None)
Quarter: 2006Q1

REPORT INFORMATION
  Report Type: 
  Country: None (occurrence: None)
  Receive Date: 20060210
  Receipt Date: 20060202
  Transmission Date: 20060701
  Serious: Yes (Other)
  Sender: FDA-Public Use
  Company Number: HQWYE640403FEB06

PATIENT
  Age: 33 Year
  Sex: Female
  Weight: 43.58 kg

DRUGS (4)
  1. PREMARIN [Suspect]
     Indication: OESTROGEN REPLACEMENT THERAPY
     Dosage: ORAL
     Route: 048
     Dates: start: 19790101
  2. LEVOXYL [Concomitant]
  3. SINGULAIR [Concomitant]
  4. UNSPECIFIED ANTIDEPRESSANT [Concomitant]

REACTIONS (11)
  - ALOPECIA [None]
  - ANOREXIA [None]
  - BLOOD CHOLESTEROL INCREASED [None]
  - DEPRESSION [None]
  - FATIGUE [None]
  - GASTROINTESTINAL DISORDER [None]
  - HYPOTHYROIDISM [None]
  - JAUNDICE [None]
  - LIBIDO DECREASED [None]
  - MIGRAINE [None]
  - THIRST [None]
